FAERS Safety Report 25878245 (Version 1)
Quarter: 2025Q4

REPORT INFORMATION
  Report Type: Spontaneous
  Country: CN (occurrence: CN)
  Receive Date: 20251003
  Receipt Date: 20251003
  Transmission Date: 20260118
  Serious: Yes (Other)
  Sender: Kenvue
  Company Number: CN-KENVUE-20250912921

PATIENT

DRUGS (1)
  1. ACETAMINOPHEN [Suspect]
     Active Substance: ACETAMINOPHEN
     Indication: Patent ductus arteriosus
     Dosage: 15 MILLIGRAM/KILOGRAM, FOUR TIME A DAY, FOR THREE CONSECUTIVE DAYS
     Route: 065

REACTIONS (5)
  - Hyperbilirubinaemia [Unknown]
  - Off label use [Unknown]
  - Necrotising colitis [Unknown]
  - Gastrointestinal haemorrhage [Unknown]
  - Therapeutic response unexpected [Unknown]
